FAERS Safety Report 6840797-4 (Version None)
Quarter: 2010Q3

REPORT INFORMATION
  Report Type: 
  Country: None (occurrence: None)
  Receive Date: 20100714
  Receipt Date: 20100618
  Transmission Date: 20110219
  Serious: Yes (Other)
  Sender: FDA-Public Use
  Company Number: PHHY2010JP09860

PATIENT
  Age: 63 Year
  Sex: Male

DRUGS (3)
  1. DIOVAN [Suspect]
     Indication: HYPERTENSION
     Dosage: 80 MG
     Route: 048
     Dates: start: 20100126, end: 20100209
  2. CERNILTON [Concomitant]
     Dosage: UNK
     Route: 048
     Dates: start: 20100202
  3. NORVASC [Concomitant]
     Dosage: UNK
     Dates: start: 20100209

REACTIONS (4)
  - BLOOD CREATININE INCREASED [None]
  - POLLAKIURIA [None]
  - PROSTATECTOMY [None]
  - RENAL ARTERY STENOSIS [None]
